FAERS Safety Report 5260733-4 (Version None)
Quarter: 2007Q1

REPORT INFORMATION
  Report Type: 
  Country: None (occurrence: None)
  Receive Date: 20061208
  Receipt Date: 20050502
  Transmission Date: 20070707
  Serious: No
  Sender: FDA-Public Use
  Company Number: 2005UW06733

PATIENT
  Sex: Male

DRUGS (1)
  1. NEXIUM [Suspect]
     Dates: start: 20020101

REACTIONS (1)
  - GASTROINTESTINAL HAEMORRHAGE [None]
